FAERS Safety Report 24082700 (Version 2)
Quarter: 2024Q4

REPORT INFORMATION
  Report Type: Report from Study
  Country: US (occurrence: US)
  Receive Date: 20240712
  Receipt Date: 20241215
  Transmission Date: 20250115
  Serious: Yes (Other)
  Sender: ABBVIE
  Company Number: US-ABBVIE-5833773

PATIENT
  Age: 23 Year
  Sex: Female

DRUGS (2)
  1. RINVOQ [Suspect]
     Active Substance: UPADACITINIB
     Indication: Colitis ulcerative
     Route: 048
     Dates: start: 20231021
  2. RINVOQ [Suspect]
     Active Substance: UPADACITINIB
     Indication: Colitis ulcerative
     Route: 048

REACTIONS (2)
  - Seizure [Recovered/Resolved]
  - Seizure [Not Recovered/Not Resolved]

NARRATIVE: CASE EVENT DATE: 20240701
